FAERS Safety Report 13167184 (Version 1)
Quarter: 2017Q1

REPORT INFORMATION
  Report Type: Spontaneous
  Country: US (occurrence: US)
  Receive Date: 20170130
  Receipt Date: 20170130
  Transmission Date: 20170428
  Serious: No
  Sender: FDA-Public Use
  Company Number: None

PATIENT
  Age: 72 Year
  Sex: Male

DRUGS (2)
  1. JAKAFI [Suspect]
     Active Substance: RUXOLITINIB
     Indication: MYELOFIBROSIS
  2. JAKAFI [Suspect]
     Active Substance: RUXOLITINIB
     Indication: COLON CANCER

REACTIONS (3)
  - Oedema [None]
  - Heart rate increased [None]
  - Lethargy [None]

NARRATIVE: CASE EVENT DATE: 20170128
